FAERS Safety Report 9132887 (Version 2)
Quarter: 2013Q2

REPORT INFORMATION
  Report Type: Report from Study
  Country: BR (occurrence: BR)
  Receive Date: 20130301
  Receipt Date: 20130501
  Transmission Date: 20140414
  Serious: Yes (Hospitalization, Other)
  Sender: FDA-Public Use
  Company Number: BR-ROCHE-679498

PATIENT
  Age: 65 Year
  Sex: Female
  Weight: 50 kg

DRUGS (14)
  1. ACTEMRA [Suspect]
     Indication: RHEUMATOID ARTHRITIS
     Dosage: FORM: INFUSION; DOSE: 500 MG/50 ML; RECEIVED TOTAL DOSE OF 1000 MG (2 INFUSIONS)
     Route: 042
     Dates: start: 200910, end: 20100315
  2. ACTEMRA [Suspect]
     Dosage: LAST DOSE PRIOR TO SAE: 01/SEP/2012
     Route: 042
  3. CHLOROQUINE [Suspect]
     Indication: PRODUCT USED FOR UNKNOWN INDICATION
     Route: 065
     Dates: start: 2003, end: 201005
  4. PURAN T4 [Concomitant]
     Dosage: INDICATION: THYROID; DURATION: MORE THAN 10 YEARS AGO
     Route: 065
  5. ARAVA [Concomitant]
     Indication: RHEUMATOID ARTHRITIS
     Dosage: DURATION: FROM 5 TO 7 YEARS AGO
     Route: 065
  6. INSULINE [Concomitant]
  7. ATENOLOL [Concomitant]
  8. NAPRIX [Concomitant]
     Route: 065
  9. SUSTRATE [Concomitant]
  10. PLAGRIL [Concomitant]
     Route: 065
  11. VIVACOR (BRAZIL) [Concomitant]
     Route: 065
  12. PURAN T4 [Concomitant]
     Route: 065
  13. GLIFAGE [Concomitant]
     Route: 065
  14. SIMVASTATIN [Concomitant]
     Route: 065

REACTIONS (8)
  - Myocardial infarction [Recovered/Resolved]
  - Removal of internal fixation [Recovered/Resolved]
  - Blindness [Not Recovered/Not Resolved]
  - Diabetes mellitus [Unknown]
  - Infarction [Unknown]
  - Weight decreased [Recovered/Resolved]
  - Labyrinthitis [Recovering/Resolving]
  - Drug ineffective [Unknown]
